FAERS Safety Report 11107214 (Version 1)
Quarter: 2015Q2

REPORT INFORMATION
  Report Type: Spontaneous
  Country: US (occurrence: None)
  Receive Date: 20150511
  Receipt Date: 20150511
  Transmission Date: 20150821
  Serious: No
  Sender: FDA-Public Use
  Company Number: None

PATIENT
  Age: 45 Year
  Sex: Female

DRUGS (3)
  1. HEMORRHOIDAL SUPPOSITRIES WALGREENS [Suspect]
     Active Substance: COCOA BUTTER\PHENYLEPHRINE HYDROCHLORIDE\SHARK LIVER OIL
     Indication: HAEMORRHOIDS
     Route: 054
     Dates: start: 20150506, end: 20150507
  2. LITHIUM BICARBONATE [Concomitant]
  3. VIIBRYD [Concomitant]
     Active Substance: VILAZODONE HYDROCHLORIDE

REACTIONS (6)
  - Swelling [None]
  - Anorectal disorder [None]
  - Pain in extremity [None]
  - Drug hypersensitivity [None]
  - Genital pain [None]
  - Vulvovaginal swelling [None]

NARRATIVE: CASE EVENT DATE: 20150507
